FAERS Safety Report 5604823-2 (Version None)
Quarter: 2008Q1

REPORT INFORMATION
  Report Type: 
  Country: None (occurrence: None)
  Receive Date: 20080128
  Receipt Date: 20080115
  Transmission Date: 20080703
  Serious: Yes (Other)
  Sender: FDA-Public Use
  Company Number: GB-BAUSCH-2007BL003907

PATIENT
  Age: 36 Year
  Sex: Male

DRUGS (2)
  1. PREDNISOLONE [Suspect]
     Indication: UVEITIS
  2. CYCLOSPORINE [Suspect]
     Indication: UVEITIS

REACTIONS (6)
  - CONDITION AGGRAVATED [None]
  - GASTROENTERITIS [None]
  - UVEITIS [None]
  - VISION BLURRED [None]
  - VITREOUS DISORDER [None]
  - VITREOUS FLOATERS [None]
